FAERS Safety Report 7723722-3 (Version None)
Quarter: 2011Q3

REPORT INFORMATION
  Report Type: 
  Country: None (occurrence: None)
  Receive Date: 20110901
  Receipt Date: 20110825
  Transmission Date: 20111222
  Serious: Yes (Other)
  Sender: FDA-Public Use
  Company Number: US-JNJFOC-20110812164

PATIENT
  Sex: Female
  Weight: 59.88 kg

DRUGS (5)
  1. FIORICET [Concomitant]
     Indication: MIGRAINE
     Route: 048
     Dates: start: 19800101
  2. REMICADE [Suspect]
     Indication: COLITIS ULCERATIVE
     Route: 042
     Dates: start: 20070101
  3. THYROID TAB [Concomitant]
     Indication: HYPOTHYROIDISM
     Route: 048
     Dates: start: 19950101
  4. HORMONE THERAPY [Concomitant]
     Indication: HORMONE REPLACEMENT THERAPY
     Route: 048
     Dates: start: 19840101
  5. ELAVIL [Concomitant]
     Indication: INSOMNIA
     Route: 048
     Dates: start: 19890101

REACTIONS (7)
  - DEPRESSION [None]
  - HAEMORRHAGE [None]
  - THERAPEUTIC RESPONSE DELAYED [None]
  - ANXIETY [None]
  - WEIGHT GAIN POOR [None]
  - LARGE INTESTINAL ULCER [None]
  - SINUSITIS [None]
